FAERS Safety Report 13597999 (Version 1)
Quarter: 2017Q2

REPORT INFORMATION
  Report Type: Spontaneous
  Country: SA (occurrence: SA)
  Receive Date: 20170531
  Receipt Date: 20170531
  Transmission Date: 20170830
  Serious: Yes (Other)
  Sender: FDA-Public Use
  Company Number: SA-EISAI MEDICAL RESEARCH-EC-2017-027852

PATIENT
  Age: 35 Year

DRUGS (1)
  1. HALAVEN [Suspect]
     Active Substance: ERIBULIN MESYLATE
     Indication: SOFT TISSUE SARCOMA
     Dosage: UNKNOWN
     Route: 041

REACTIONS (1)
  - Malignant neoplasm progression [Unknown]
